FAERS Safety Report 16692110 (Version 1)
Quarter: 2019Q3

REPORT INFORMATION
  Report Type: Spontaneous
  Country: JP (occurrence: JP)
  Receive Date: 20190812
  Receipt Date: 20190812
  Transmission Date: 20191004
  Serious: Yes (Hospitalization)
  Sender: FDA-Public Use
  Company Number: JP-ASTRAZENECA-2019SF14346

PATIENT
  Age: 69 Year
  Sex: Female
  Weight: 160 kg

DRUGS (18)
  1. CALFINA [Concomitant]
     Active Substance: ALFACALCIDOL
     Dosage: DOSE UNKNOWN
     Route: 048
  2. OXYCODONE [Concomitant]
     Active Substance: OXYCODONE
     Dosage: DOSE UNKNOWN
     Route: 048
  3. TRESIBA [Concomitant]
     Active Substance: INSULIN DEGLUDEC
     Dosage: DOSE UNKNOWN
     Route: 065
  4. MEDICON [Concomitant]
     Active Substance: DEXTROMETHORPHAN HYDROBROMIDE
     Dosage: DOSE UNKNOWN
     Route: 048
  5. TRANEXAMIC ACID. [Concomitant]
     Active Substance: TRANEXAMIC ACID
     Dosage: DOSE UNKNOWN
     Route: 048
  6. MAGNESIUM OXIDE. [Concomitant]
     Active Substance: MAGNESIUM OXIDE
     Dosage: DOSE UNKNOWN
     Route: 048
  7. CARBAZOCHROME [Concomitant]
     Active Substance: CARBAZOCHROME
     Dosage: DOSE UNKNOWN
     Route: 048
  8. SENNOSIDE [Concomitant]
     Active Substance: SENNOSIDES
     Dosage: DOSE UNKNOWN
     Route: 048
  9. ZOLPIDEM TARTRATE. [Concomitant]
     Active Substance: ZOLPIDEM TARTRATE
     Dosage: DOSE UNKNOWN
     Route: 048
  10. ISCOTIN [Suspect]
     Active Substance: ISONIAZID
     Dosage: 200.0MG UNKNOWN
     Route: 048
     Dates: start: 20190412
  11. BENZBROMARONE [Concomitant]
     Active Substance: BENZBROMARONE
     Dosage: DOSE UNKNOWN
     Route: 048
  12. IMFINZI [Suspect]
     Active Substance: DURVALUMAB
     Route: 041
     Dates: start: 20181128, end: 20190306
  13. DAIPHEN [Suspect]
     Active Substance: SULFAMETHOXAZOLE\TRIMETHOPRIM
     Dosage: DOSE UNKNOWN
     Route: 048
     Dates: start: 20190412
  14. NOVORAPID [Concomitant]
     Active Substance: INSULIN ASPART
     Dosage: DOSE UNKNOWN
     Route: 065
  15. LANSOPRAZOLE. [Concomitant]
     Active Substance: LANSOPRAZOLE
     Dosage: DOSE UNKNOWN
     Route: 048
  16. XYZAL [Concomitant]
     Active Substance: LEVOCETIRIZINE DIHYDROCHLORIDE
     Dosage: DOSE UNKNOWN
     Route: 048
  17. PYDOXAL [Concomitant]
     Active Substance: PYRIDOXAL
     Dosage: DOSE UNKNOWN
     Route: 048
  18. OXINORM [Concomitant]
     Dosage: DOSE UNKNOWN
     Route: 048

REACTIONS (3)
  - Radiation pneumonitis [Unknown]
  - Liver disorder [Not Recovered/Not Resolved]
  - Glucose tolerance impaired [Unknown]

NARRATIVE: CASE EVENT DATE: 20190704
